FAERS Safety Report 7141048-6 (Version None)
Quarter: 2010Q4

REPORT INFORMATION
  Report Type: 
  Country: None (occurrence: None)
  Receive Date: 20101201
  Receipt Date: 20101201
  Transmission Date: 20110411
  Serious: Yes (Hospitalization)
  Sender: FDA-Public Use
  Company Number: None

PATIENT
  Sex: Female
  Weight: 74.2 kg

DRUGS (5)
  1. ETOPOSIDE [Suspect]
     Dosage: 701 MG
     Dates: end: 20101122
  2. CYCLOPHOSPHAMIDE [Suspect]
     Dosage: 4096 MG
     Dates: end: 20101125
  3. CYTARABINE [Suspect]
     Dosage: 30 MG
     Dates: end: 20101119
  4. HYDROCORTISONE [Suspect]
     Dosage: 15 MG
     Dates: end: 20101119
  5. METHOTREXATE [Suspect]
     Dosage: 15 MG
     Dates: end: 20101119

REACTIONS (25)
  - ABDOMINAL DISTENSION [None]
  - ASCITES [None]
  - ASPERGILLOSIS [None]
  - BLOOD BICARBONATE INCREASED [None]
  - BLOOD PRESSURE DECREASED [None]
  - COAGULOPATHY [None]
  - DIALYSIS [None]
  - FLUID OVERLOAD [None]
  - FUNGAL INFECTION [None]
  - HAEMORRHAGE [None]
  - HEPATIC FUNCTION ABNORMAL [None]
  - HYPOCALCAEMIA [None]
  - HYPOGLYCAEMIA [None]
  - HYPOKALAEMIA [None]
  - HYPOPHOSPHATAEMIA [None]
  - HYPOTENSION [None]
  - LACTIC ACIDOSIS [None]
  - LIVER FUNCTION TEST ABNORMAL [None]
  - MENTAL STATUS CHANGES [None]
  - METABOLIC ACIDOSIS [None]
  - PAIN [None]
  - PANCYTOPENIA [None]
  - PETECHIAE [None]
  - PYREXIA [None]
  - RENAL FAILURE [None]
